FAERS Safety Report 9163338 (Version 1)
Quarter: 2013Q1

REPORT INFORMATION
  Report Type: Spontaneous
  Country: US (occurrence: None)
  Receive Date: 20130225
  Receipt Date: 20130225
  Transmission Date: 20140127
  Serious: Yes (Congenital Anomaly, Other)
  Sender: FDA-Public Use
  Company Number: 2013-02832

PATIENT
  Sex: 0

DRUGS (2)
  1. EPIRUBICIN HYDROCHLORIDE [Suspect]
     Indication: BREAST CANCER
     Route: 064
  2. CYCLOPHOSPHAMIDE (CYCLOPHOSPHAMIDE) [Suspect]
     Indication: BREAST CANCER
     Route: 064

REACTIONS (4)
  - Talipes [None]
  - Eye haemangioma [None]
  - Strabismus [None]
  - Maternal drugs affecting foetus [None]
